FAERS Safety Report 7714675-2 (Version None)
Quarter: 2011Q3

REPORT INFORMATION
  Report Type: 
  Country: None (occurrence: None)
  Receive Date: 20110804
  Receipt Date: 20110418
  Transmission Date: 20111222
  Serious: No
  Sender: FDA-Public Use
  Company Number: 2011-05609

PATIENT
  Age: 60 Year
  Sex: Male
  Weight: 86.2 kg

DRUGS (2)
  1. RAPAFLO [Suspect]
     Indication: POLLAKIURIA
     Dosage: 8 MG, EVERY NIGHT, ORAL
     Route: 048
     Dates: start: 20110401, end: 20110401
  2. RAPAFLO [Suspect]
     Indication: BENIGN PROSTATIC HYPERPLASIA
     Dosage: 8 MG, EVERY NIGHT, ORAL
     Route: 048
     Dates: start: 20110401, end: 20110401

REACTIONS (2)
  - FEELING ABNORMAL [None]
  - MENTAL IMPAIRMENT [None]
